FAERS Safety Report 12951520 (Version 1)
Quarter: 2016Q4

REPORT INFORMATION
  Report Type: Spontaneous
  Country: US (occurrence: US)
  Receive Date: 20161117
  Receipt Date: 20161117
  Transmission Date: 20170207
  Serious: Yes (Other)
  Sender: FDA-Public Use
  Company Number: US-BAYER-2016-220237

PATIENT
  Age: 40 Year
  Sex: Female

DRUGS (3)
  1. DILANTIN [Suspect]
     Active Substance: PHENYTOIN
     Indication: EPILEPSY
     Dosage: 300 MG, UNK
     Route: 048
  2. SEROQUEL [Suspect]
     Active Substance: QUETIAPINE FUMARATE
     Indication: EPILEPSY
     Dosage: UNK
  3. CLARITIN [Suspect]
     Active Substance: LORATADINE
     Dosage: AT NIGHT (IN THE EVENING)

REACTIONS (6)
  - Acute kidney injury [Unknown]
  - Convulsive threshold lowered [Unknown]
  - Hypertension [Unknown]
  - Drug interaction [None]
  - Seizure [Unknown]
  - Paralysis [Unknown]

NARRATIVE: CASE EVENT DATE: 201605
